FAERS Safety Report 7168452-4 (Version None)
Quarter: 2010Q4

REPORT INFORMATION
  Report Type: 
  Country: None (occurrence: None)
  Receive Date: 20101216
  Receipt Date: 20100107
  Transmission Date: 20110411
  Serious: No
  Sender: FDA-Public Use
  Company Number: US-AMGEN-KDL384211

PATIENT

DRUGS (12)
  1. ENBREL [Suspect]
     Indication: RHEUMATOID ARTHRITIS
     Dosage: 25 MG, QWK
  2. FOLINIC ACID [Concomitant]
     Dosage: 5 MG, UNK
  3. METHOTREXATE [Concomitant]
     Dosage: 2.5 MG, UNK
  4. HYDROCHLOROTHIAZIDE [Concomitant]
     Dosage: 12.5 MG, UNK
  5. LEVOTHYROXINE SODIUM [Concomitant]
     Dosage: 175 A?G, UNK
  6. MULTI-VITAMINS [Concomitant]
     Dosage: UNK UNK, UNK
  7. FLAX SEED OIL [Concomitant]
     Dosage: 1000 MG, UNK
  8. FISH OIL [Concomitant]
     Dosage: UNK UNK, UNK
  9. ERGOCALCIFEROL [Concomitant]
     Dosage: UNK UNK, UNK
  10. CALCIUM WITH VITAMIN D [Concomitant]
     Dosage: UNK UNK, UNK
  11. UNSPECIFIED MEDICATION [Concomitant]
     Dosage: UNK UNK, UNK
  12. GUAIFENESIN [Concomitant]
     Dosage: UNK UNK, UNK

REACTIONS (1)
  - MUSCLE SPASMS [None]
